FAERS Safety Report 18050084 (Version 2)
Quarter: 2021Q2

REPORT INFORMATION
  Report Type: Report from Study
  Country: US (occurrence: US)
  Receive Date: 20200721
  Receipt Date: 20210629
  Transmission Date: 20210717
  Serious: Yes (Other)
  Sender: FDA-Public Use
  Company Number: US-TEVA-2020-US-1801455

PATIENT
  Age: 60 Year
  Sex: Female

DRUGS (3)
  1. CIPROFLOXACIN. [Suspect]
     Active Substance: CIPROFLOXACIN
     Indication: URINARY TRACT INFECTION
     Route: 065
  2. COPAXONE [Suspect]
     Active Substance: GLATIRAMER ACETATE
  3. COPAXONE [Suspect]
     Active Substance: GLATIRAMER ACETATE

REACTIONS (9)
  - Pain in extremity [Unknown]
  - Paranoia [Unknown]
  - Visual field defect [Unknown]
  - Neuropathy peripheral [Unknown]
  - Injection site indentation [Unknown]
  - Urinary tract infection [Unknown]
  - Rheumatoid arthritis [Unknown]
  - Asthenia [Unknown]
  - Vision blurred [Unknown]
